FAERS Safety Report 6077502-8 (Version None)
Quarter: 2009Q1

REPORT INFORMATION
  Report Type: 
  Country: None (occurrence: None)
  Receive Date: 20090213
  Receipt Date: 20090206
  Transmission Date: 20090719
  Serious: Yes (Hospitalization)
  Sender: FDA-Public Use
  Company Number: JP-ASTRAZENECA-2009SE00752

PATIENT
  Age: 64 Year
  Sex: Male

DRUGS (3)
  1. BLOPRESS [Suspect]
     Indication: HYPERTENSION
     Route: 048
     Dates: end: 20090110
  2. LIMAS [Suspect]
     Route: 048
  3. WARFARIN SODIUM [Suspect]
     Route: 048

REACTIONS (1)
  - JAUNDICE [None]
